FAERS Safety Report 13569910 (Version 2)
Quarter: 2017Q3

REPORT INFORMATION
  Report Type: Spontaneous
  Country: IN (occurrence: IN)
  Receive Date: 20170522
  Receipt Date: 20170710
  Transmission Date: 20171127
  Serious: Yes (Other)
  Sender: FDA-Public Use
  Company Number: IN-BAXALTA-2017BLT004493

PATIENT

DRUGS (2)
  1. ALBUMIN HUMAN USP [Suspect]
     Active Substance: ALBUMIN HUMAN
     Indication: PRODUCT USED FOR UNKNOWN INDICATION
     Dosage: 100 ML, UNK
     Route: 065
     Dates: start: 20170513, end: 20170513
  2. ALBUMIN HUMAN USP [Suspect]
     Active Substance: ALBUMIN HUMAN
     Dosage: 100 ML, UNK
     Route: 065
     Dates: start: 20170514, end: 20170514

REACTIONS (3)
  - Vomiting [Not Recovered/Not Resolved]
  - Nausea [Not Recovered/Not Resolved]
  - Transfusion-related acute lung injury [Not Recovered/Not Resolved]

NARRATIVE: CASE EVENT DATE: 20170514
